FAERS Safety Report 25389358 (Version 1)
Quarter: 2025Q2

REPORT INFORMATION
  Report Type: Spontaneous
  Country: JP (occurrence: JP)
  Receive Date: 20250603
  Receipt Date: 20250603
  Transmission Date: 20250717
  Serious: Yes (Hospitalization)
  Sender: ACCORD
  Company Number: JP-Accord-487432

PATIENT
  Age: 19 Year
  Sex: Female

DRUGS (2)
  1. FUROSEMIDE [Suspect]
     Active Substance: FUROSEMIDE
     Indication: Cardiac failure acute
  2. TOLVAPTAN [Suspect]
     Active Substance: TOLVAPTAN
     Indication: Cardiac failure acute

REACTIONS (4)
  - Hyponatraemia [Unknown]
  - Hypoperfusion [Unknown]
  - Hypotension [Unknown]
  - Hypovolaemia [Unknown]
